FAERS Safety Report 5521438-5 (Version None)
Quarter: 2007Q4

REPORT INFORMATION
  Report Type: 
  Country: None (occurrence: None)
  Receive Date: 20071119
  Receipt Date: 20071109
  Transmission Date: 20080405
  Serious: Yes (Other)
  Sender: FDA-Public Use
  Company Number: US-PFIZER INC-2007095416

PATIENT
  Sex: Male
  Weight: 68 kg

DRUGS (1)
  1. DETROL LA [Suspect]
     Indication: DYSURIA
     Dates: start: 20071107, end: 20071108

REACTIONS (4)
  - ASTHENIA [None]
  - CONTUSION [None]
  - FALL [None]
  - MUSCLE DISORDER [None]
